FAERS Safety Report 11253322 (Version 1)
Quarter: 2015Q3

REPORT INFORMATION
  Report Type: Spontaneous
  Country: US (occurrence: US)
  Receive Date: 20150709
  Receipt Date: 20150709
  Transmission Date: 20151125
  Serious: No
  Sender: FDA-Public Use
  Company Number: US-TEVA-484905USA

PATIENT
  Sex: Male

DRUGS (1)
  1. LEVOFLOXACIN TABLETS, 250 MG, 500 MG AND 750 MG [Suspect]
     Active Substance: LEVOFLOXACIN
     Route: 048

REACTIONS (5)
  - Nasal congestion [Unknown]
  - Muscle spasms [Unknown]
  - Nausea [Unknown]
  - Asthenia [Unknown]
  - Tendon disorder [Unknown]
